FAERS Safety Report 14269014 (Version 1)
Quarter: 2017Q4

REPORT INFORMATION
  Report Type: Spontaneous
  Country: DE (occurrence: DE)
  Receive Date: 20171211
  Receipt Date: 20171211
  Transmission Date: 20180321
  Serious: Yes (Congenital Anomaly, Other)
  Sender: FDA-Public Use
  Company Number: DE-OTSUKA-2016_023043

PATIENT
  Sex: Male
  Weight: 3.55 kg

DRUGS (2)
  1. ORFIRIL [Suspect]
     Active Substance: VALPROATE SODIUM
     Indication: PRODUCT USED FOR UNKNOWN INDICATION
     Dosage: 300 MG, QD
     Route: 064
     Dates: start: 20150817, end: 20150924
  2. ABILIFY [Suspect]
     Active Substance: ARIPIPRAZOLE
     Indication: PRODUCT USED FOR UNKNOWN INDICATION
     Dosage: 15 MG, BIW
     Route: 064
     Dates: start: 20150817, end: 20150924

REACTIONS (4)
  - Surgery [Unknown]
  - Congenital inguinal hernia [Recovered/Resolved with Sequelae]
  - Foetal exposure during pregnancy [Unknown]
  - Congenital dermal sinus [Recovered/Resolved with Sequelae]

NARRATIVE: CASE EVENT DATE: 20160510
